FAERS Safety Report 8099565 (Version 5)
Quarter: 2012Q4

REPORT INFORMATION
  Report Type: 
  Country: US (occurrence: US)
  Receive Date: 20110822
  Receipt Date: 20121105
  Transmission Date: 20130627
  Serious: Yes (Life-Threatening, Other)
  Sender: FDA-Public Use
  Company Number: US-JNJFOC-20110805556

PATIENT
  Sex: Female
  Weight: 50.35 kg

DRUGS (9)
  1. PRECISE EXTRA STRENGTH PAIN RELIEVING CREAM [Suspect]
     Indication: PAIN IN EXTREMITY
     Dosage: quarter size on each arm once daily for about 3-4 days.
     Route: 061
     Dates: end: 20110806
  2. ADVIL [Suspect]
     Indication: PAIN IN EXTREMITY
     Dosage: 2 tablets, almost every day for about a week
     Route: 065
     Dates: start: 20110806
  3. THYROID SUPPLEMENTS [Concomitant]
     Indication: HYPOTHYROIDISM
     Route: 065
  4. VICODIN [Concomitant]
     Indication: PRODUCT USED FOR UNKNOWN INDICATION
     Dosage: stopped a week to ten days before the episode
     Route: 065
  5. BONIVA [Concomitant]
     Indication: PRODUCT USED FOR UNKNOWN INDICATION
     Route: 065
  6. VAGIFEM [Concomitant]
     Indication: PRODUCT USED FOR UNKNOWN INDICATION
     Route: 065
  7. XANAX [Concomitant]
     Indication: PRODUCT USED FOR UNKNOWN INDICATION
     Route: 065
  8. ^VITAMINS^ (NOS) [Concomitant]
     Indication: PRODUCT USED FOR UNKNOWN INDICATION
     Route: 065
  9. HERBAL [Concomitant]
     Indication: PRODUCT USED FOR UNKNOWN INDICATION
     Route: 065

REACTIONS (2)
  - Anaphylactic shock [Recovered/Resolved]
  - Anaemia [None]
